FAERS Safety Report 7201190-8 (Version None)
Quarter: 2010Q4

REPORT INFORMATION
  Report Type: 
  Country: None (occurrence: None)
  Receive Date: 20101229
  Receipt Date: 20101222
  Transmission Date: 20110411
  Serious: Yes (Hospitalization)
  Sender: FDA-Public Use
  Company Number: JP-CELGENEUS-087-21880-10122809

PATIENT
  Sex: Male
  Weight: 46.8 kg

DRUGS (12)
  1. REVLIMID [Suspect]
     Indication: MULTIPLE MYELOMA
     Route: 048
     Dates: start: 20100908, end: 20100909
  2. LENADEX [Suspect]
     Indication: MULTIPLE MYELOMA
     Route: 048
     Dates: start: 20100909, end: 20100909
  3. MS CONTIN [Concomitant]
     Route: 048
  4. SENNOSIDE [Concomitant]
     Route: 048
  5. MUCOSTA [Concomitant]
     Indication: PROPHYLAXIS
     Route: 048
  6. MOBIC [Concomitant]
     Route: 048
  7. TAKEPRON [Concomitant]
     Route: 048
  8. MAGMITT [Concomitant]
     Route: 048
  9. MEXITIL [Concomitant]
     Route: 048
  10. TOFRANIL [Concomitant]
     Route: 048
     Dates: end: 20100913
  11. MOHRUS TAPE [Concomitant]
     Dosage: OPTIMUM DOSE
     Route: 062
  12. MORPHINE HYDROCHLORIDE [Concomitant]
     Route: 048

REACTIONS (3)
  - ANAEMIA [None]
  - DELIRIUM [None]
  - PLATELET COUNT DECREASED [None]
